FAERS Safety Report 11311805 (Version 1)
Quarter: 2015Q3

REPORT INFORMATION
  Report Type: Spontaneous
  Country: US (occurrence: None)
  Receive Date: 20150723
  Receipt Date: 20150723
  Transmission Date: 20151125
  Serious: Yes (Hospitalization, Other)
  Sender: FDA-Public Use
  Company Number: ZYDUS-008617

PATIENT
  Age: 8 Year
  Sex: Male

DRUGS (1)
  1. SIROLIMUS (SIROLIMUS) [Suspect]
     Active Substance: SIROLIMUS
     Indication: GRAFT VERSUS HOST DISEASE IN SKIN

REACTIONS (7)
  - Interstitial lung disease [None]
  - Cough [None]
  - Hypoxia [None]
  - Clubbing [None]
  - Restrictive pulmonary disease [None]
  - Polycythaemia [None]
  - Stem cell transplant [None]
